FAERS Safety Report 15811753 (Version 1)
Quarter: 2019Q1

REPORT INFORMATION
  Report Type: Spontaneous
  Country: TN (occurrence: TN)
  Receive Date: 20190111
  Receipt Date: 20190111
  Transmission Date: 20190417
  Serious: Yes (Hospitalization, Other)
  Sender: FDA-Public Use
  Company Number: TN-BAYER-2019-005348

PATIENT
  Age: 50 Year
  Sex: Male

DRUGS (4)
  1. CICLOSPORIN [Concomitant]
     Active Substance: CYCLOSPORINE
     Indication: IMMUNOSUPPRESSION
     Dosage: UNK
  2. MYCOPHENOLATE MOFETIL. [Concomitant]
     Active Substance: MYCOPHENOLATE MOFETIL
     Indication: IMMUNOSUPPRESSION
     Dosage: UNK
  3. CIPROFLOXACIN. [Suspect]
     Active Substance: CIPROFLOXACIN
     Indication: ESCHERICHIA SEPSIS
  4. IMIPENEM [CILASTATIN SODIUM;IMIPENEM] [Concomitant]
     Active Substance: CILASTATIN SODIUM\IMIPENEM
     Indication: ESCHERICHIA SEPSIS
     Dosage: UNK

REACTIONS (2)
  - Acute kidney injury [Unknown]
  - Crystal nephropathy [Unknown]

NARRATIVE: CASE EVENT DATE: 2010
